FAERS Safety Report 6556516-5 (Version None)
Quarter: 2010Q1

REPORT INFORMATION
  Report Type: 
  Country: None (occurrence: None)
  Receive Date: 20100128
  Receipt Date: 20100125
  Transmission Date: 20100710
  Serious: Yes (Hospitalization)
  Sender: FDA-Public Use
  Company Number: DE-MERCK-1001DEU00003

PATIENT
  Age: 60 Year
  Sex: Male
  Weight: 58 kg

DRUGS (9)
  1. PROSCAR [Suspect]
     Indication: ALOPECIA
     Route: 048
  2. ATORVASTATIN CALCIUM [Suspect]
     Indication: HYPERCHOLESTEROLAEMIA
     Route: 048
     Dates: start: 20090319, end: 20091026
  3. ST JOHNS WORT [Suspect]
     Indication: MOOD ALTERED
     Route: 048
  4. VALERIAN [Concomitant]
     Route: 065
  5. MIDAZOLAM [Concomitant]
     Indication: INGUINAL HERNIA REPAIR
     Route: 065
     Dates: start: 20090930
  6. THIOPENTAL SODIUM [Concomitant]
     Indication: INGUINAL HERNIA REPAIR
     Route: 065
     Dates: start: 20090930
  7. SUFENTANIL [Concomitant]
     Dosage: GIVEN ON TWO OCCASIONS
     Route: 065
     Dates: start: 20090930
  8. ATRACURIUM BESYLATE [Concomitant]
     Route: 065
     Dates: start: 20090930, end: 20090930
  9. DESFLURANE [Suspect]
     Indication: INGUINAL HERNIA REPAIR
     Route: 055
     Dates: start: 20090930, end: 20090930

REACTIONS (5)
  - DRUG INTERACTION [None]
  - HEPATITIS [None]
  - INGUINAL HERNIA [None]
  - LYMPHADENOPATHY [None]
  - WRONG TECHNIQUE IN DRUG USAGE PROCESS [None]
